FAERS Safety Report 14554345 (Version 1)
Quarter: 2018Q1

REPORT INFORMATION
  Report Type: Spontaneous
  Country: US (occurrence: US)
  Receive Date: 20180217
  Receipt Date: 20180217
  Transmission Date: 20180509
  Serious: Yes (Hospitalization, Other)
  Sender: FDA-Public Use
  Company Number: None

PATIENT
  Age: 14 Month
  Sex: Female
  Weight: 9.9 kg

DRUGS (1)
  1. OSELTAMIVIR 6MG/ML SUSPENSION [Suspect]
     Active Substance: OSELTAMIVIR PHOSPHATE
     Indication: INFLUENZA
     Dosage: ?          QUANTITY:5 TEASPOON(S);?
     Route: 048
     Dates: start: 20180213, end: 20180215

REACTIONS (1)
  - Hypothermia [None]

NARRATIVE: CASE EVENT DATE: 20180216
